FAERS Safety Report 9349755 (Version 1)
Quarter: 2013Q2

REPORT INFORMATION
  Report Type: Spontaneous
  Country: FR (occurrence: FR)
  Receive Date: 20130614
  Receipt Date: 20130614
  Transmission Date: 20140414
  Serious: Yes (Disabling)
  Sender: FDA-Public Use
  Company Number: FR-BAXTER-2013BAX020892

PATIENT
  Age: 65 Year
  Sex: Female

DRUGS (10)
  1. ENDOXAN 2000 MG, LYOPHILISAT POUR SOLUTION INJECTABLE [Suspect]
     Indication: BREAST CANCER
     Route: 065
     Dates: start: 20130204, end: 20130204
  2. AVASTIN [Suspect]
     Indication: BREAST CANCER
     Route: 042
     Dates: start: 20120322, end: 20120903
  3. AVASTIN [Suspect]
     Route: 042
     Dates: start: 20120928, end: 20121221
  4. AVASTIN [Suspect]
     Route: 042
     Dates: end: 20130111
  5. TAXOL [Suspect]
     Indication: BREAST CANCER
     Route: 065
     Dates: start: 20120322, end: 20120903
  6. MYOCET [Suspect]
     Indication: BREAST CANCER
     Dosage: 100 MG
     Route: 042
     Dates: start: 20130204, end: 20130204
  7. NEBIVOLOL [Concomitant]
     Indication: PRODUCT USED FOR UNKNOWN INDICATION
     Route: 065
  8. AXELER [Concomitant]
     Indication: PRODUCT USED FOR UNKNOWN INDICATION
     Route: 065
  9. SEROPLEX [Concomitant]
     Indication: PRODUCT USED FOR UNKNOWN INDICATION
     Route: 065
  10. ALPRAZOLAM [Concomitant]
     Indication: PRODUCT USED FOR UNKNOWN INDICATION
     Route: 065

REACTIONS (3)
  - Dyspnoea exertional [Not Recovered/Not Resolved]
  - Ejection fraction decreased [Not Recovered/Not Resolved]
  - Pulmonary arterial hypertension [Not Recovered/Not Resolved]
